FAERS Safety Report 15491322 (Version 3)
Quarter: 2018Q4

REPORT INFORMATION
  Report Type: Report from Study
  Country: None (occurrence: US)
  Receive Date: 20181012
  Receipt Date: 20181021
  Transmission Date: 20190205
  Serious: Yes (Death, Hospitalization, Other)
  Sender: FDA-Public Use
  Company Number: US-ABBVIE-18S-163-2466415-00

PATIENT
  Sex: Female
  Weight: 44.49 kg

DRUGS (1)
  1. DUOPA [Suspect]
     Active Substance: CARBIDOPA\LEVODOPA
     Indication: PARKINSON^S DISEASE
     Route: 050
     Dates: start: 20180816

REACTIONS (8)
  - Device dislocation [Recovered/Resolved]
  - Stoma site infection [Unknown]
  - Respiratory failure [Fatal]
  - Stoma site extravasation [Recovered/Resolved]
  - Pneumonia [Not Recovered/Not Resolved]
  - Stoma site infection [Recovering/Resolving]
  - Freezing phenomenon [Recovered/Resolved]
  - General physical health deterioration [Not Recovered/Not Resolved]

NARRATIVE: CASE EVENT DATE: 2018
